FAERS Safety Report 6209855-1 (Version None)
Quarter: 2009Q2

REPORT INFORMATION
  Report Type: 
  Country: None (occurrence: None)
  Receive Date: 20090601
  Receipt Date: 20090522
  Transmission Date: 20091009
  Serious: Yes (Other)
  Sender: FDA-Public Use
  Company Number: US-B.I. PHARMACEUTICALS,INC./RIDGEFIELD-2008-DE-01988GD

PATIENT

DRUGS (1)
  1. DIPYRIDAMOLE [Suspect]

REACTIONS (1)
  - CEREBRAL HAEMORRHAGE [None]
